FAERS Safety Report 5016397-8 (Version None)
Quarter: 2006Q2

REPORT INFORMATION
  Report Type: 
  Country: None (occurrence: None)
  Receive Date: 20060602
  Receipt Date: 20060524
  Transmission Date: 20061013
  Serious: Yes (Other)
  Sender: FDA-Public Use
  Company Number: PHBS2006IE07682

PATIENT
  Age: 65 Year
  Sex: Female

DRUGS (3)
  1. LAMISIL [Suspect]
     Indication: FUNGAL INFECTION
     Dosage: 250 MG/DAY
     Route: 048
  2. LIVIAL [Concomitant]
  3. DICLAC - SLOW RELEASE ^HEXAL^ [Concomitant]

REACTIONS (3)
  - ARTHRITIS [None]
  - CATATONIA [None]
  - PAIN [None]
